FAERS Safety Report 13028455 (Version 2)
Quarter: 2017Q1

REPORT INFORMATION
  Report Type: Spontaneous
  Country: US (occurrence: US)
  Receive Date: 20161214
  Receipt Date: 20170204
  Transmission Date: 20170428
  Serious: No
  Sender: FDA-Public Use
  Company Number: US-SHIRE-US201619216

PATIENT
  Age: 54 Year
  Sex: Male
  Weight: 108.84 kg

DRUGS (7)
  1. VYVANSE [Suspect]
     Active Substance: LISDEXAMFETAMINE DIMESYLATE
     Dosage: UNK, UNKNOWN
     Route: 048
  2. SEROQUEL [Concomitant]
     Active Substance: QUETIAPINE FUMARATE
     Indication: MOOD ALTERED
     Dosage: 400 MG, 1X/DAY:QD
     Route: 048
     Dates: start: 2016
  3. COLCHICINE. [Concomitant]
     Active Substance: COLCHICINE
     Indication: GOUT
     Dosage: 1 MG, 1X/DAY:QD
     Route: 048
     Dates: start: 2014
  4. SIMVASTATIN. [Concomitant]
     Active Substance: SIMVASTATIN
     Indication: HYPERTENSION
     Dosage: 40 MG, 1X/DAY:QD
     Route: 048
  5. CYMBALTA [Concomitant]
     Active Substance: DULOXETINE HYDROCHLORIDE
     Indication: DEPRESSION
     Dosage: 120 MG (TWO 60 MG TABS), 1X/DAY:QD
     Route: 048
     Dates: start: 2016
  6. VYVANSE [Suspect]
     Active Substance: LISDEXAMFETAMINE DIMESYLATE
     Indication: ATTENTION DEFICIT/HYPERACTIVITY DISORDER
     Dosage: 70 MG, 1X/DAY:QD
     Route: 048
  7. REMERON [Concomitant]
     Active Substance: MIRTAZAPINE
     Indication: DEPRESSION
     Dosage: 40 MG (TWO 20 MG TABS AT NIGHT), 1X/DAY:QD
     Route: 048
     Dates: start: 2016

REACTIONS (4)
  - Inappropriate schedule of drug administration [Recovered/Resolved]
  - Overdose [Recovered/Resolved]
  - Drug ineffective [Not Recovered/Not Resolved]
  - Product tampering [Unknown]

NARRATIVE: CASE EVENT DATE: 201612
